FAERS Safety Report 19203912 (Version 1)
Quarter: 2021Q2

REPORT INFORMATION
  Report Type: Spontaneous
  Country: US (occurrence: US)
  Receive Date: 20210503
  Receipt Date: 20210503
  Transmission Date: 20210717
  Serious: Yes (Other)
  Sender: FDA-Public Use
  Company Number: US-LUPIN PHARMACEUTICALS INC.-2021-05694

PATIENT
  Age: 51 Year
  Sex: Female

DRUGS (3)
  1. LERONLIMAB. [Suspect]
     Active Substance: LERONLIMAB
     Dosage: 700 MILLIGRAM ( SECOND INJECTION AT STUDY DAY 7)
     Route: 058
  2. HYDROXYCHLOROQUINE [Suspect]
     Active Substance: HYDROXYCHLOROQUINE
     Indication: COVID-19
     Dosage: UNK
     Route: 065
  3. LERONLIMAB. [Suspect]
     Active Substance: LERONLIMAB
     Indication: COVID-19
     Dosage: 700 MILLIGRAM (FIRST INJECTION FOLLOWING BASELINE BLOOD COLLECTION)
     Route: 058

REACTIONS (1)
  - Off label use [Unknown]
